FAERS Safety Report 7563940-0 (Version None)
Quarter: 2011Q2

REPORT INFORMATION
  Report Type: 
  Country: None (occurrence: None)
  Receive Date: 20110622
  Receipt Date: 20110614
  Transmission Date: 20111010
  Serious: No
  Sender: FDA-Public Use
  Company Number: IE-UCBSA-035304

PATIENT
  Sex: Female

DRUGS (1)
  1. KEPPRA [Suspect]

REACTIONS (1)
  - THROMBOCYTOPENIA [None]
